FAERS Safety Report 18866262 (Version 5)
Quarter: 2021Q3

REPORT INFORMATION
  Report Type: Report from Study
  Country: US (occurrence: US)
  Receive Date: 20210209
  Receipt Date: 20210825
  Transmission Date: 20211014
  Serious: No
  Sender: FDA-Public Use
  Company Number: NVSC2021US022678

PATIENT
  Age: 60 Year
  Sex: Female

DRUGS (4)
  1. ALDACTONE [Suspect]
     Active Substance: SPIRONOLACTONE
     Indication: PRODUCT USED FOR UNKNOWN INDICATION
     Dosage: UNK
     Route: 065
  2. ENTRESTO [Suspect]
     Active Substance: SACUBITRIL\VALSARTAN
     Indication: PRODUCT USED FOR UNKNOWN INDICATION
     Dosage: 50 MG, BID
     Route: 048
     Dates: start: 20201023
  3. TDAP IMMUN [Suspect]
     Active Substance: DIPHTHERIA AND TETANUS TOXOIDS AND ACELLULAR PERTUSSIS VACCINE ADSORBED
     Indication: PRODUCT USED FOR UNKNOWN INDICATION
     Dosage: UNK(VACCINE)
     Route: 065
  4. CARVEDILOL. [Suspect]
     Active Substance: CARVEDILOL
     Indication: PRODUCT USED FOR UNKNOWN INDICATION
     Dosage: UNK
     Route: 065

REACTIONS (20)
  - Dizziness [Recovering/Resolving]
  - Peripheral swelling [Unknown]
  - Swelling [Not Recovered/Not Resolved]
  - Feeling abnormal [Recovering/Resolving]
  - Vertigo [Unknown]
  - Weight fluctuation [Recovering/Resolving]
  - Weight decreased [Recovering/Resolving]
  - Gastrooesophageal reflux disease [Unknown]
  - Dyspnoea [Unknown]
  - Pain [Recovering/Resolving]
  - Sleep disorder [Unknown]
  - Anxiety [Unknown]
  - Somnolence [Recovering/Resolving]
  - Fatigue [Recovering/Resolving]
  - Product administration error [Unknown]
  - Dehydration [Unknown]
  - Otorrhoea [Unknown]
  - Asthenia [Recovering/Resolving]
  - Memory impairment [Unknown]
  - Cough [Unknown]

NARRATIVE: CASE EVENT DATE: 20210316
